FAERS Safety Report 17662888 (Version 2)
Quarter: 2020Q2

REPORT INFORMATION
  Report Type: Spontaneous
  Country: CA (occurrence: CA)
  Receive Date: 20200413
  Receipt Date: 20200424
  Transmission Date: 20200713
  Serious: Yes (Hospitalization, Other)
  Sender: FDA-Public Use
  Company Number: CA-PFIZER INC-2020149525

PATIENT
  Age: 77 Year
  Sex: Female

DRUGS (41)
  1. APO-FUROSEMIDE [Suspect]
     Active Substance: FUROSEMIDE
     Indication: OEDEMA
     Dosage: 40 MG, 1X/DAY
  2. CARBAMAZEPINE. [Suspect]
     Active Substance: CARBAMAZEPINE
     Dosage: UNK
     Route: 065
  3. DILTIAZEM. [Suspect]
     Active Substance: DILTIAZEM
     Indication: CORONARY ARTERY DISEASE
     Dosage: 360 MG, DAILY
     Route: 065
  4. SPIRIVA [Suspect]
     Active Substance: TIOTROPIUM BROMIDE MONOHYDRATE
     Indication: CHRONIC OBSTRUCTIVE PULMONARY DISEASE
     Dosage: 18 UG, 1X/DAY
     Route: 065
  5. AMITRIPTYLINE HCL [Suspect]
     Active Substance: AMITRIPTYLINE
     Dosage: UNK
     Route: 065
  6. APO-CARBAMAZEPINE [Suspect]
     Active Substance: CARBAMAZEPINE
     Dosage: UNK
  7. CYCLOBENZAPRINE. [Suspect]
     Active Substance: CYCLOBENZAPRINE
     Dosage: UNK
     Route: 065
  8. OMEPRAZOLE. [Suspect]
     Active Substance: OMEPRAZOLE
     Indication: DUODENAL ULCER
     Dosage: 20 MG, DAILY
     Route: 065
  9. ORAMORPH SR SUSTAINED RELEASE [Suspect]
     Active Substance: MORPHINE SULFATE
     Indication: FIBROMYALGIA
     Dosage: 10 MG, 1X/DAY
     Route: 065
  10. OXAZEPAM. [Suspect]
     Active Substance: OXAZEPAM
     Dosage: UNK
     Route: 065
  11. VACCINIUM MACROCARPON [Concomitant]
     Active Substance: CRANBERRY
     Dosage: UNK
  12. QUINAPRIL. [Suspect]
     Active Substance: QUINAPRIL
     Indication: HYPERTENSION
     Dosage: 40 MG, DAILY
     Route: 065
  13. ACETAMINOPHEN;CAFFEINE [Suspect]
     Active Substance: ACETAMINOPHEN\CAFFEINE
     Dosage: UNK
     Route: 065
  14. AGGRENOX [Suspect]
     Active Substance: ASPIRIN\DIPYRIDAMOLE
     Indication: CEREBROVASCULAR ACCIDENT
     Dosage: 1 DF, 2X/DAY (2 EVERY 1 DAY)
     Route: 065
  15. DILTIAZEM. [Suspect]
     Active Substance: DILTIAZEM
     Indication: HYPERTENSION
     Dosage: 360 MG, DAILY
     Route: 065
  16. DILTIAZEM. [Suspect]
     Active Substance: DILTIAZEM
     Indication: CHEST PAIN
  17. DULCOLAX (BISACODYL) [Suspect]
     Active Substance: BISACODYL
     Indication: CONSTIPATION
     Dosage: 2 DF, 1X/DAY
     Route: 065
  18. MAGNESIUM HYDROXIDE. [Suspect]
     Active Substance: MAGNESIUM HYDROXIDE
     Dosage: UNK
     Route: 065
  19. PERSANTINE [Suspect]
     Active Substance: DIPYRIDAMOLE
     Indication: CEREBROVASCULAR ACCIDENT
     Dosage: 1 DF, 2X/DAY (2 EVERY 1 DAY)
     Route: 065
  20. ROSUVASTATIN CALCIUM. [Suspect]
     Active Substance: ROSUVASTATIN CALCIUM
     Dosage: UNK
     Route: 065
  21. QUINAPRIL. [Suspect]
     Active Substance: QUINAPRIL
     Indication: CORONARY ARTERY DISEASE
     Dosage: 20 MG, DAILY
     Route: 065
  22. APO-AMITRIPTYLINE [Suspect]
     Active Substance: AMITRIPTYLINE HYDROCHLORIDE
     Dosage: UNK
  23. APO-OXAZEPAM [Suspect]
     Active Substance: OXAZEPAM
     Dosage: UNK
  24. SALBUTAMOL SULFATE [Suspect]
     Active Substance: ALBUTEROL SULFATE
     Dosage: UNK
     Route: 065
  25. LEVOFLOXACIN. [Suspect]
     Active Substance: LEVOFLOXACIN
     Dosage: UNK
     Route: 065
  26. NITROGLYCERIN. [Suspect]
     Active Substance: NITROGLYCERIN
     Dosage: UNK
     Route: 065
  27. APO-CYCLOBENZAPRINE [Suspect]
     Active Substance: CYCLOBENZAPRINE
     Dosage: UNK
  28. APO-DILTIAZ [Suspect]
     Active Substance: DILTIAZEM HYDROCHLORIDE
     Dosage: UNK
  29. CYCLOBENZAPRINE HCL [Suspect]
     Active Substance: CYCLOBENZAPRINE HYDROCHLORIDE
     Dosage: UNK
     Route: 065
  30. GALANTAMINE HYDROBROMIDE. [Suspect]
     Active Substance: GALANTAMINE HYDROBROMIDE
     Dosage: UNK
     Route: 065
  31. GLUCOSAMINE [Suspect]
     Active Substance: GLUCOSAMINE
     Dosage: UNK
     Route: 065
  32. ORAMORPH SR SUSTAINED RELEASE [Suspect]
     Active Substance: MORPHINE SULFATE
     Indication: PAIN
     Dosage: UNK
     Route: 065
  33. CRANBERRY. [Concomitant]
     Active Substance: CRANBERRY
     Dosage: UNK
  34. ACETAMINOPHEN. [Concomitant]
     Active Substance: ACETAMINOPHEN
     Dosage: UNK
  35. AMLODIPINE BESILATE [Suspect]
     Active Substance: AMLODIPINE BESYLATE
     Dosage: UNK
     Route: 065
  36. FUROSEMIDE. [Suspect]
     Active Substance: FUROSEMIDE
     Dosage: UNK
     Route: 065
  37. ACEBUTOLOL HYDROCHLORIDE. [Suspect]
     Active Substance: ACEBUTOLOL HYDROCHLORIDE
     Dosage: UNK
     Route: 065
  38. DILTIAZEM. [Suspect]
     Active Substance: DILTIAZEM
     Indication: ANGINA PECTORIS
  39. ZINC. [Concomitant]
     Active Substance: ZINC
     Dosage: UNK
  40. LACTULOSE. [Suspect]
     Active Substance: LACTULOSE
     Dosage: UNK
     Route: 065
  41. LEVOTHYROXINE SODIUM. [Suspect]
     Active Substance: LEVOTHYROXINE SODIUM
     Dosage: UNK
     Route: 065

REACTIONS (14)
  - Constipation [Recovered/Resolved]
  - Pain [Recovered/Resolved]
  - Sedation [Recovered/Resolved]
  - Depressed level of consciousness [Recovered/Resolved]
  - Hypotension [Recovered/Resolved]
  - Blood calcium decreased [Recovered/Resolved]
  - Sedation complication [Recovered/Resolved]
  - Fall [Recovered/Resolved]
  - Toxicity to various agents [Recovered/Resolved]
  - Mobility decreased [Recovered/Resolved]
  - Balance disorder [Recovered/Resolved]
  - Cognitive disorder [Recovered/Resolved]
  - Creatinine renal clearance decreased [Recovered/Resolved]
  - Orthostatic hypotension [Recovered/Resolved]
